FAERS Safety Report 21125033 (Version 1)
Quarter: 2022Q3

REPORT INFORMATION
  Report Type: Spontaneous
  Country: US (occurrence: None)
  Receive Date: 20220722
  Receipt Date: 20220722
  Transmission Date: 20221027
  Serious: Yes (Hospitalization)
  Sender: FDA-Public Use
  Company Number: None

PATIENT
  Age: 16 Year
  Sex: Male

DRUGS (1)
  1. ADVATE [Suspect]
     Active Substance: ANTIHEMOPHILIC FACTOR, HUMAN RECOMBINANT
     Indication: Factor VIII deficiency
     Dosage: OTHER STRENGTH : 3965 UNITS;?FREQUENCY : AS NEEDED;?
     Route: 042
     Dates: start: 202203

REACTIONS (2)
  - Fall [None]
  - Concussion [None]

NARRATIVE: CASE EVENT DATE: 20220711
